FAERS Safety Report 5008488-2 (Version None)
Quarter: 2006Q2

REPORT INFORMATION
  Report Type: 
  Country: None (occurrence: None)
  Receive Date: 20060518
  Receipt Date: 20060424
  Transmission Date: 20061013
  Serious: Yes (Other)
  Sender: FDA-Public Use
  Company Number: 224837

PATIENT
  Age: 62 Year
  Sex: Male
  Weight: 75 kg

DRUGS (8)
  1. AVASTIN [Suspect]
     Indication: COLON CANCER
     Dosage: 370 MG, Q2W, INTRAVENOUS
     Route: 042
     Dates: start: 20060104
  2. OXALIPLATIN (OXALIPLATIN) [Suspect]
     Indication: COLON CANCER
     Dosage: Q2W, INTRAVENOUS
     Route: 042
     Dates: start: 20060104, end: 20060424
  3. LEUCOVORIN CALCIUM [Suspect]
     Indication: COLON CANCER
     Dosage: 375 MG, 4/MONTH, INTRAVENOUS
     Route: 042
     Dates: start: 20060104
  4. FLUOROURACIL [Suspect]
     Indication: COLON CANCER
     Dosage: SEE IMAGE
     Route: 042
     Dates: start: 20060104
  5. ONDANSETRON HCL [Concomitant]
  6. MAXOLON [Concomitant]
  7. DEXAMETHASONE TAB [Concomitant]
  8. AMOXICILLIN [Concomitant]

REACTIONS (1)
  - HYPERSENSITIVITY [None]
